FAERS Safety Report 5408997-8 (Version None)
Quarter: 2007Q3

REPORT INFORMATION
  Report Type: 
  Country: None (occurrence: None)
  Receive Date: 20070806
  Receipt Date: 20070730
  Transmission Date: 20080115
  Serious: Yes (Death, Hospitalization)
  Sender: FDA-Public Use
  Company Number: 2007SP011551

PATIENT
  Age: 53 Year
  Sex: Male
  Weight: 74.3899 kg

DRUGS (2)
  1. PEG-INTRON [Suspect]
     Indication: HEPATITIS C
     Dosage: 96 MCG;QW;SC
     Route: 058
     Dates: start: 20070412, end: 20070420
  2. RIBAVIRIN [Suspect]
     Indication: HEPATITIS C
     Dosage: 1200 MG;QD;PO
     Route: 048
     Dates: start: 20070412, end: 20070420

REACTIONS (3)
  - FALL [None]
  - INTRACRANIAL ANEURYSM [None]
  - SUICIDAL IDEATION [None]
